FAERS Safety Report 9105694 (Version 1)
Quarter: 2013Q1

REPORT INFORMATION
  Report Type: Spontaneous
  Country: US (occurrence: US)
  Receive Date: 20130220
  Receipt Date: 20130220
  Transmission Date: 20140127
  Serious: No
  Sender: FDA-Public Use
  Company Number: US-PFIZER INC-2013061514

PATIENT
  Age: 61 Year
  Sex: Female
  Weight: 89.34 kg

DRUGS (1)
  1. VANCOMYCIN HCL [Suspect]
     Indication: CLOSTRIDIUM DIFFICILE INFECTION
     Dosage: UNK, 4X/DAY
     Dates: start: 20121215, end: 201302

REACTIONS (1)
  - Drug ineffective [Recovered/Resolved]
